FAERS Safety Report 17190072 (Version 1)
Quarter: 2019Q4

REPORT INFORMATION
  Report Type: Spontaneous
  Country: US (occurrence: US)
  Receive Date: 20191223
  Receipt Date: 20191223
  Transmission Date: 20200122
  Serious: Yes (Death, Other)
  Sender: FDA-Public Use
  Company Number: US-SA-2019SA352739

PATIENT
  Sex: Male

DRUGS (3)
  1. PLAVIX [Suspect]
     Active Substance: CLOPIDOGREL BISULFATE
     Dosage: UNK UNK, UNK
     Route: 065
  2. ELIQUIS [Concomitant]
     Active Substance: APIXABAN
     Dosage: UNK UNK, UNK
  3. TIKOSYN [Concomitant]
     Active Substance: DOFETILIDE
     Dosage: UNK UNK, UNK

REACTIONS (3)
  - Myocardial infarction [Fatal]
  - VIth nerve paralysis [Unknown]
  - Thrombosis [Unknown]
